FAERS Safety Report 9014489 (Version 2)
Quarter: 2013Q4

REPORT INFORMATION
  Report Type: Spontaneous
  Country: US (occurrence: US)
  Receive Date: 20130115
  Receipt Date: 20131010
  Transmission Date: 20140711
  Serious: Yes (Other)
  Sender: FDA-Public Use
  Company Number: US-PFIZER INC-2013014937

PATIENT
  Age: 54 Year
  Sex: Male
  Weight: 61.6 kg

DRUGS (3)
  1. ALPRAZOLAM [Suspect]
     Indication: ANXIETY
     Dosage: 1 MG, 4X/DAY
     Route: 048
     Dates: start: 2002, end: 20130104
  2. ALPRAZOLAM [Suspect]
     Indication: SLEEP DISORDER
     Dosage: 2 MG, 4X/DAY
     Route: 048
     Dates: start: 20130104
  3. ALPRAZOLAM [Suspect]
     Indication: PANIC ATTACK
     Dosage: 1 MG, 6X/DAY

REACTIONS (5)
  - Hip fracture [Unknown]
  - Lower limb fracture [Unknown]
  - Weight decreased [Unknown]
  - Drug ineffective [Unknown]
  - Off label use [Unknown]
